FAERS Safety Report 19861267 (Version 1)
Quarter: 2021Q3

REPORT INFORMATION
  Report Type: Spontaneous
  Country: US (occurrence: US)
  Receive Date: 20210921
  Receipt Date: 20210921
  Transmission Date: 20211014
  Serious: Yes (Other)
  Sender: FDA-Public Use
  Company Number: None

PATIENT
  Age: 38 Year
  Sex: Female
  Weight: 102.6 kg

DRUGS (3)
  1. CIMZIA [Concomitant]
     Active Substance: CERTOLIZUMAB PEGOL
  2. REGEN?COV [Suspect]
     Active Substance: CASIRIVIMAB\IMDEVIMAB
     Indication: COVID-19
     Dates: start: 20210914, end: 20210914
  3. METHOTREXATE ORAL [Concomitant]
     Active Substance: METHOTREXATE

REACTIONS (2)
  - Blood pressure systolic decreased [None]
  - Bradycardia [None]

NARRATIVE: CASE EVENT DATE: 20210914
